FAERS Safety Report 7561356-4 (Version None)
Quarter: 2011Q2

REPORT INFORMATION
  Report Type: 
  Country: None (occurrence: None)
  Receive Date: 20110621
  Receipt Date: 20101122
  Transmission Date: 20111010
  Serious: No
  Sender: FDA-Public Use
  Company Number: US-ASTRAZENECA-2010SE55881

PATIENT
  Sex: Female

DRUGS (2)
  1. PULMICORT [Suspect]
     Route: 055
  2. CRESTOR [Suspect]
     Route: 048

REACTIONS (1)
  - MALAISE [None]
